FAERS Safety Report 9373594 (Version 1)
Quarter: 2013Q2

REPORT INFORMATION
  Report Type: Spontaneous
  Country: NL (occurrence: NL)
  Receive Date: 20130627
  Receipt Date: 20130627
  Transmission Date: 20140414
  Serious: Yes (Life-Threatening)
  Sender: FDA-Public Use
  Company Number: PHHY2013NL065324

PATIENT
  Sex: Male
  Weight: 61 kg

DRUGS (9)
  1. CARBAMAZEPINE [Suspect]
     Indication: BIPOLAR DISORDER
     Dosage: 3 DF, QD
     Dates: start: 1987
  2. BACLOFEN [Suspect]
     Indication: HYPERTONIA
     Dosage: 3 DF, QD
     Dates: start: 2002
  3. VALPROIC ACID [Suspect]
     Indication: BIPOLAR DISORDER
     Dosage: 2 DF, BID
     Dates: start: 19970123
  4. PIPAMPERONE [Suspect]
     Indication: ABNORMAL BEHAVIOUR
     Dosage: 3 DF, QD
     Dates: start: 1983
  5. BROMAZEPAM [Concomitant]
     Dosage: 3 DF, QD
     Dates: start: 19980202
  6. CISORDINOL//ZUCLOPENTHIXOL HYDROCHLORIDE [Concomitant]
     Dosage: UNK UKN, UNK (UPTO 3 DF, BID)
     Dates: end: 19920831
  7. MACROGOL W/POTASSIUM CHLORIDE/SODIUM BICARBON [Concomitant]
     Dosage: 1 DF, QD
  8. OMEPRAZOL//OMEPRAZOLE MAGNESIUM [Concomitant]
     Dosage: 1 DF, QD
  9. CALCICHEW [Concomitant]
     Dosage: UNK UKN, UNK

REACTIONS (2)
  - Neuroleptic malignant syndrome [Recovering/Resolving]
  - Dystonia [Recovering/Resolving]
